FAERS Safety Report 4573013-7 (Version None)
Quarter: 2005Q1

REPORT INFORMATION
  Report Type: 
  Country: None (occurrence: None)
  Receive Date: 20050204
  Receipt Date: 20050131
  Transmission Date: 20050727
  Serious: Yes (Other)
  Sender: FDA-Public Use
  Company Number: FRWYE386131JAN05

PATIENT
  Sex: Male

DRUGS (1)
  1. EFFEXOR [Suspect]
     Route: 048

REACTIONS (2)
  - PSEUDO LYMPHOMA [None]
  - RASH PAPULAR [None]
